FAERS Safety Report 4630394-3 (Version None)
Quarter: 2005Q2

REPORT INFORMATION
  Report Type: 
  Country: None (occurrence: None)
  Receive Date: 20050406
  Receipt Date: 20050322
  Transmission Date: 20051028
  Serious: Yes (Death, Hospitalization, Other)
  Sender: FDA-Public Use
  Company Number: USA050393793

PATIENT
  Age: 81 Year
  Sex: Male
  Weight: 75 kg

DRUGS (5)
  1. FORTEO [Suspect]
     Indication: OSTEOPOROSIS
     Dates: end: 20040101
  2. VITAMIN B-12 [Concomitant]
  3. FOSAMAX [Concomitant]
  4. ARICEPT [Concomitant]
  5. REMINYL [Concomitant]

REACTIONS (13)
  - ABASIA [None]
  - EATING DISORDER [None]
  - EYE INJURY [None]
  - FACIAL BONES FRACTURE [None]
  - FALL [None]
  - HAND FRACTURE [None]
  - HEAD INJURY [None]
  - HIP FRACTURE [None]
  - PARKINSON'S DISEASE [None]
  - PNEUMONIA [None]
  - PROSTATE CANCER [None]
  - ROAD TRAFFIC ACCIDENT [None]
  - ROTATOR CUFF SYNDROME [None]
